FAERS Safety Report 6183112-4 (Version None)
Quarter: 2009Q2

REPORT INFORMATION
  Report Type: 
  Country: None (occurrence: None)
  Receive Date: 20090506
  Receipt Date: 20090423
  Transmission Date: 20091009
  Serious: Yes (Life-Threatening)
  Sender: FDA-Public Use
  Company Number: 257707

PATIENT
  Age: 82 Year
  Sex: Male

DRUGS (6)
  1. VINCRISTINE [Suspect]
     Indication: NON-HODGKIN'S LYMPHOMA
     Dosage: 2 MG, INTRAVENOUS
     Route: 042
     Dates: start: 20090210, end: 20090210
  2. (MABTHERA) [Suspect]
     Indication: NON-HODGKIN'S LYMPHOMA
     Dosage: 667 MG, 667MG PLANNED - LESS THAN 15 MG ADMINISTERED INTRAVENOUS
     Route: 042
     Dates: start: 20090210, end: 20090210
  3. (ENDOXAN /00021101/) [Suspect]
     Indication: NON-HODGKIN'S LYMPHOMA
     Dosage: 1000 MG, INTRAVENOUS
     Route: 042
     Dates: start: 20090210, end: 20090210
  4. (ZOPHREN /00955302/) [Suspect]
     Indication: NON-HODGKIN'S LYMPHOMA
     Dosage: 8 MG, INTRAVENOUS
     Route: 042
     Dates: start: 20090210, end: 20090210
  5. SOLU-MEDROL [Suspect]
     Indication: NON-HODGKIN'S LYMPHOMA
     Dosage: 120 MG, INTRAVENOUS
     Route: 042
     Dates: start: 20090210, end: 20090210
  6. (POLARAMINE /00043702/) [Suspect]
     Indication: NON-HODGKIN'S LYMPHOMA
     Dosage: 5 MG, INTRAVENOUS
     Route: 042
     Dates: start: 20090210, end: 20090210

REACTIONS (4)
  - ANGINA PECTORIS [None]
  - CYANOSIS [None]
  - OXYGEN SATURATION DECREASED [None]
  - SHOCK [None]
